FAERS Safety Report 16824641 (Version 2)
Quarter: 2020Q4

REPORT INFORMATION
  Report Type: Spontaneous
  Country: US (occurrence: US)
  Receive Date: 20190918
  Receipt Date: 20201125
  Transmission Date: 20210113
  Serious: Yes (Other)
  Sender: FDA-Public Use
  Company Number: US-ANIPHARMA-2019-US-017475

PATIENT
  Age: 84 Year
  Sex: Female
  Weight: 93.89 kg

DRUGS (2)
  1. ANASTROZOLE. [Suspect]
     Active Substance: ANASTROZOLE
     Indication: BREAST CANCER
     Dosage: 1MG PER DAY
     Route: 065
     Dates: start: 2013, end: 20201021
  2. TAMOXIFEN [Suspect]
     Active Substance: TAMOXIFEN
     Dosage: UNK
     Route: 065

REACTIONS (15)
  - Diverticulitis [Unknown]
  - Uterine cancer [Unknown]
  - Gastrooesophageal reflux disease [Unknown]
  - Breast cancer metastatic [Unknown]
  - Disease progression [Unknown]
  - Nephrolithiasis [Unknown]
  - Back disorder [Unknown]
  - Tumour marker increased [Not Recovered/Not Resolved]
  - Fall [Unknown]
  - Barrett^s oesophagus [Unknown]
  - Wrist fracture [Unknown]
  - Drug ineffective [Unknown]
  - Osteopenia [Not Recovered/Not Resolved]
  - Metastases to spine [Not Recovered/Not Resolved]
  - Uterine disorder [Unknown]

NARRATIVE: CASE EVENT DATE: 20200901
